FAERS Safety Report 9665372 (Version 2)
Quarter: 2013Q4

REPORT INFORMATION
  Report Type: Spontaneous
  Country: US (occurrence: US)
  Receive Date: 20131104
  Receipt Date: 20131104
  Transmission Date: 20140711
  Serious: Yes (Other)
  Sender: FDA-Public Use
  Company Number: US-JNJFOC-20130917814

PATIENT
  Age: 18 Year
  Sex: Male

DRUGS (12)
  1. RISPERDAL CONSTA [Suspect]
     Indication: PSYCHOTIC DISORDER
     Route: 030
  2. RISPERDAL CONSTA [Suspect]
     Indication: PSYCHOTIC DISORDER
     Route: 030
     Dates: start: 20120816, end: 20131001
  3. RISPERDAL CONSTA [Suspect]
     Indication: BIPOLAR I DISORDER
     Route: 030
  4. RISPERDAL CONSTA [Suspect]
     Indication: BIPOLAR I DISORDER
     Route: 030
     Dates: start: 20120816, end: 20131001
  5. RISPERDAL [Suspect]
     Indication: PSYCHOTIC DISORDER
     Route: 048
     Dates: start: 201208, end: 201310
  6. RISPERDAL [Suspect]
     Indication: PSYCHOTIC DISORDER
     Route: 048
     Dates: start: 201207, end: 201209
  7. RISPERDAL [Suspect]
     Indication: BIPOLAR I DISORDER
     Route: 048
     Dates: start: 201208, end: 201310
  8. RISPERDAL [Suspect]
     Indication: BIPOLAR I DISORDER
     Route: 048
     Dates: start: 201207, end: 201209
  9. DEPAKOTE [Suspect]
     Indication: PSYCHOTIC DISORDER
     Dosage: 500MG/500MG IN THE MORNING AND 1000 IN??THE EVENING
     Route: 048
     Dates: start: 20120704
  10. DEPAKOTE [Suspect]
     Indication: BIPOLAR I DISORDER
     Dosage: 500MG/500MG IN THE MORNING AND 1000 IN??THE EVENING
     Route: 048
     Dates: start: 20120704
  11. ABILIFY [Suspect]
     Indication: PSYCHOTIC DISORDER
     Route: 065
     Dates: start: 201207, end: 201208
  12. ABILIFY [Suspect]
     Indication: BIPOLAR I DISORDER
     Route: 065
     Dates: start: 201207, end: 201208

REACTIONS (8)
  - Weight increased [Unknown]
  - Blood cholesterol increased [Unknown]
  - Ammonia increased [Unknown]
  - Alanine aminotransferase increased [Unknown]
  - Blood triglycerides increased [Unknown]
  - Blood glucose increased [Unknown]
  - Hallucination, auditory [Unknown]
  - Aggression [Unknown]
